FAERS Safety Report 5406925-2 (Version None)
Quarter: 2007Q3

REPORT INFORMATION
  Report Type: 
  Country: None (occurrence: None)
  Receive Date: 20070807
  Receipt Date: 20070803
  Transmission Date: 20080115
  Serious: Yes (Hospitalization)
  Sender: FDA-Public Use
  Company Number: US-BRISTOL-MYERS SQUIBB COMPANY-13868054

PATIENT
  Age: 77 Year
  Sex: Male
  Weight: 89 kg

DRUGS (4)
  1. CETUXIMAB [Suspect]
     Indication: NON-SMALL CELL LUNG CANCER
     Dosage: CYC1-6:400MG/M2 IV 2 HRS ON WK 1 + 250MG/M2 IV 1 HR WKLY FROM WK 2. CYC7+:250MG/M2 IV 1 HR WKLY.
     Route: 042
     Dates: start: 20070709, end: 20070709
  2. PACLITAXEL [Suspect]
     Indication: NON-SMALL CELL LUNG CANCER
     Dosage: CYC 1-6: 200MG/M2 IV OVER 3 HRS Q21 DAYS STARTING WEEK1.
     Route: 042
     Dates: start: 20070709, end: 20070710
  3. CARBOPLATIN [Suspect]
     Indication: NON-SMALL CELL LUNG CANCER
     Dosage: CYC 1-6: AUC 6 IV OVER 30 MIN Q21 DAYS STARTING WK 1.
     Route: 042
     Dates: start: 20070709, end: 20070710
  4. BEVACIZUMAB [Suspect]
     Indication: NON-SMALL CELL LUNG CANCER
     Dosage: CYC1-7+: 15MG/M2 IV OVER 90-30 MIN Q21 DAYS.
     Route: 042
     Dates: start: 20070709, end: 20070710

REACTIONS (4)
  - DEHYDRATION [None]
  - DIARRHOEA [None]
  - NAUSEA [None]
  - VOMITING [None]
